FAERS Safety Report 23597846 (Version 1)
Quarter: 2024Q1

REPORT INFORMATION
  Report Type: Spontaneous
  Country: US (occurrence: US)
  Receive Date: 20240305
  Receipt Date: 20240305
  Transmission Date: 20240409
  Serious: No
  Sender: FDA-Public Use
  Company Number: US-LEX-000190

PATIENT
  Age: 80 Year
  Sex: Male

DRUGS (1)
  1. INPEFA [Suspect]
     Active Substance: SOTAGLIFLOZIN
     Indication: Product used for unknown indication
     Route: 048
     Dates: start: 20240120, end: 20240218

REACTIONS (5)
  - Nausea [Unknown]
  - Confusional state [Unknown]
  - Dizziness [Unknown]
  - Vomiting [Unknown]
  - Nightmare [Unknown]
